FAERS Safety Report 4719649-1 (Version None)
Quarter: 2005Q3

REPORT INFORMATION
  Report Type: 
  Country: None (occurrence: None)
  Receive Date: 20050721
  Receipt Date: 20040601
  Transmission Date: 20060218
  Serious: No
  Sender: FDA-Public Use
  Company Number: US-GLAXOSMITHKLINE-A0512895A

PATIENT
  Age: 69 Year
  Sex: Male

DRUGS (7)
  1. AVANDIA [Suspect]
     Dosage: 8MG PER DAY
     Route: 048
     Dates: start: 20040501
  2. POTASSIUM CHLORIDE [Concomitant]
  3. GLYBURIDE [Concomitant]
  4. METFORMIN [Concomitant]
  5. FUROSEMIDE [Concomitant]
  6. NORVASC [Concomitant]
  7. LANTUS [Concomitant]

REACTIONS (1)
  - PARAESTHESIA [None]
